FAERS Safety Report 16765038 (Version 1)
Quarter: 2019Q3

REPORT INFORMATION
  Report Type: Spontaneous
  Country: US (occurrence: US)
  Receive Date: 20190903
  Receipt Date: 20190903
  Transmission Date: 20191005
  Serious: Yes (Hospitalization, Other)
  Sender: FDA-Public Use
  Company Number: US-ALKEM LABORATORIES LIMITED-US-ALKEM-2019-07656

PATIENT
  Age: 58 Year
  Sex: Male

DRUGS (1)
  1. MYCOPHENOLATE MOFETIL. [Suspect]
     Active Substance: MYCOPHENOLATE MOFETIL
     Indication: PROPHYLAXIS AGAINST TRANSPLANT REJECTION
     Dosage: 1500 MILLIGRAM, BID RECONSTITUTED IN 250 ML OF 5% DEXTROSE INFUSED OVER TWO HOURS
     Route: 042

REACTIONS (4)
  - Drug ineffective [Unknown]
  - Soft tissue necrosis [Unknown]
  - Infusion site extravasation [Unknown]
  - Skin toxicity [Unknown]
